FAERS Safety Report 4438546-2 (Version None)
Quarter: 2004Q3

REPORT INFORMATION
  Report Type: 
  Country: None (occurrence: None)
  Receive Date: 20040831
  Receipt Date: 20040827
  Transmission Date: 20050211
  Serious: Yes (Death, Other)
  Sender: FDA-Public Use
  Company Number: US-MERCK-0408USA02063

PATIENT
  Age: 94 Year
  Sex: Female

DRUGS (1)
  1. AQUAMEPHYTON [Suspect]
     Route: 041

REACTIONS (6)
  - ADVERSE EVENT [None]
  - DEATH [None]
  - HYPERHIDROSIS [None]
  - HYPOTENSION [None]
  - MULTI-ORGAN FAILURE [None]
  - PALLOR [None]
